FAERS Safety Report 18526654 (Version 3)
Quarter: 2020Q4

REPORT INFORMATION
  Report Type: Spontaneous
  Country: CA (occurrence: CA)
  Receive Date: 20201120
  Receipt Date: 20201216
  Transmission Date: 20210114
  Serious: Yes (Other)
  Sender: FDA-Public Use
  Company Number: CA-JNJFOC-20201124806

PATIENT
  Age: 54 Year
  Sex: Female

DRUGS (8)
  1. AMITRIPTYLINE [Suspect]
     Active Substance: AMITRIPTYLINE
     Indication: PAIN
     Route: 065
  2. GABAPENTIN. [Suspect]
     Active Substance: GABAPENTIN
     Indication: PAIN
     Route: 065
  3. ULTRAM [Suspect]
     Active Substance: TRAMADOL HYDROCHLORIDE
     Indication: PAIN
     Route: 065
  4. NORTRIPTYLINE [Concomitant]
     Active Substance: NORTRIPTYLINE
  5. VENLAFAXINE HYDROCHLORIDE. [Concomitant]
     Active Substance: VENLAFAXINE HYDROCHLORIDE
  6. ACTEMRA [Suspect]
     Active Substance: TOCILIZUMAB
     Indication: RHEUMATOID ARTHRITIS
     Route: 042
  7. METHOTREXATE. [Concomitant]
     Active Substance: METHOTREXATE
  8. RABEPRAZOLE [Concomitant]
     Active Substance: RABEPRAZOLE

REACTIONS (43)
  - Respiratory rate increased [Unknown]
  - Therapeutic response changed [Unknown]
  - Pain in extremity [Unknown]
  - Rheumatoid arthritis [Unknown]
  - Drug intolerance [Unknown]
  - Eye disorder [Unknown]
  - Hordeolum [Unknown]
  - Blood pressure increased [Unknown]
  - Influenza [Unknown]
  - Localised infection [Unknown]
  - Cough [Unknown]
  - Oral herpes [Unknown]
  - Drug ineffective [Unknown]
  - Rash [Unknown]
  - Bronchitis [Unknown]
  - Hypertension [Unknown]
  - Arthralgia [Unknown]
  - Nausea [Unknown]
  - Ear pain [Unknown]
  - Pharyngitis [Unknown]
  - Sinusitis [Unknown]
  - Off label use [Unknown]
  - Fatigue [Unknown]
  - Pain [Unknown]
  - Peripheral swelling [Unknown]
  - Blister [Unknown]
  - Corneal abrasion [Unknown]
  - Gastroenteritis viral [Unknown]
  - Glossodynia [Unknown]
  - Malaise [Unknown]
  - Groin infection [Unknown]
  - Impaired healing [Unknown]
  - Nasopharyngitis [Unknown]
  - Oxygen saturation decreased [Unknown]
  - Salivary gland disorder [Unknown]
  - Superficial injury of eye [Unknown]
  - Product use in unapproved indication [Unknown]
  - Musculoskeletal pain [Unknown]
  - Oropharyngeal pain [Unknown]
  - Therapeutic product effect incomplete [Unknown]
  - Blood pressure systolic increased [Unknown]
  - Seasonal allergy [Unknown]
  - Back pain [Unknown]
